FAERS Safety Report 10203758 (Version 7)
Quarter: 2014Q4

REPORT INFORMATION
  Report Type: Spontaneous
  Country: US (occurrence: None)
  Receive Date: 20140523
  Receipt Date: 20141001
  Transmission Date: 20150528
  Serious: Yes (Life-Threatening, Hospitalization)
  Sender: FDA-Public Use
  Company Number: US-001030

PATIENT
  Age: 80 Year
  Sex: Female
  Weight: 54.43 kg

DRUGS (12)
  1. CALCIUM [Concomitant]
     Active Substance: CALCIUM
  2. NACL [Concomitant]
     Active Substance: SODIUM CHLORIDE
  3. I.V. SOLUTIONS (UNKNOWN) [Concomitant]
     Active Substance: UNSPECIFIED INGREDIENT
  4. POTASSIUM [Concomitant]
     Active Substance: POTASSIUM
  5. VITAMIN D3 [Concomitant]
     Active Substance: CHOLECALCIFEROL
  6. FENTANYL. [Concomitant]
     Active Substance: FENTANYL
  7. VITAMIN D3 [Suspect]
     Active Substance: CHOLECALCIFEROL
     Indication: VITAMIN SUPPLEMENTATION
  8. IRON [Concomitant]
     Active Substance: IRON
  9. MAGNESIUM [Concomitant]
     Active Substance: MAGNESIUM
  10. SOLUTIONS FOR PARENTERAL NUTRITION [Concomitant]
     Active Substance: AMINO ACIDS\DEXTROSE\ELECTROLYTES NOS
  11. GATTEX [Suspect]
     Active Substance: TEDUGLUTIDE\WATER
     Indication: SHORT-BOWEL SYNDROME
     Dosage: DF SUBCUTANEOUS
     Route: 058
     Dates: start: 20140402, end: 20140501
  12. HYDROCODONE [Concomitant]
     Active Substance: HYDROCODONE

REACTIONS (21)
  - Drug prescribing error [None]
  - Decreased appetite [None]
  - Prescribed overdose [None]
  - Loss of consciousness [None]
  - Malaise [None]
  - Weight decreased [None]
  - Musculoskeletal pain [None]
  - Viral infection [None]
  - Weight increased [None]
  - Fall [None]
  - Abdominal pain [None]
  - Drug dose omission [None]
  - Asthenia [None]
  - Laceration [None]
  - Dehydration [None]
  - Gait disturbance [None]
  - Rotator cuff syndrome [None]
  - Diarrhoea [None]
  - Oral herpes [None]
  - Hypertension [None]
  - Vomiting [None]

NARRATIVE: CASE EVENT DATE: 20140408
